FAERS Safety Report 8125062-X (Version None)
Quarter: 2012Q1

REPORT INFORMATION
  Report Type: 
  Country: None (occurrence: None)
  Receive Date: 20120209
  Receipt Date: 20120127
  Transmission Date: 20120608
  Serious: Yes (Other)
  Sender: FDA-Public Use
  Company Number: US-UCBSA-050727

PATIENT
  Age: 52 Year
  Sex: Male
  Weight: 107.5 kg

DRUGS (3)
  1. ZONEGRAN [Suspect]
     Indication: EPILEPSY
     Dates: end: 20110701
  2. VIMPAT [Suspect]
     Indication: EPILEPSY
     Route: 048
  3. GENRIC KEPPRA [Concomitant]
     Indication: EPILEPSY
     Route: 048

REACTIONS (1)
  - GRAND MAL CONVULSION [None]
